FAERS Safety Report 14374268 (Version 10)
Quarter: 2021Q4

REPORT INFORMATION
  Report Type: Spontaneous
  Country: US (occurrence: US)
  Receive Date: 20180111
  Receipt Date: 20211224
  Transmission Date: 20220303
  Serious: No
  Sender: FDA-Public Use
  Company Number: US-AMGEN-USASP2018003548

PATIENT
  Age: 62 Year
  Sex: Female
  Weight: 64.853 kg

DRUGS (3)
  1. ENBREL [Suspect]
     Active Substance: ETANERCEPT
     Indication: Rheumatoid arthritis
     Dosage: UNK UNK, WEEKLY
     Route: 065
     Dates: start: 201205, end: 201510
  2. ENBREL [Suspect]
     Active Substance: ETANERCEPT
     Indication: Psoriatic arthropathy
     Dosage: UNK
     Route: 065
  3. HUMIRA [Suspect]
     Active Substance: ADALIMUMAB
     Indication: Psoriatic arthropathy
     Dosage: UNK, QWK
     Route: 065

REACTIONS (5)
  - Nausea [Unknown]
  - Dizziness [Unknown]
  - Injection site pain [Unknown]
  - Drug ineffective [Recovered/Resolved]
  - Illness [Unknown]
